FAERS Safety Report 5513768-8 (Version None)
Quarter: 2007Q4

REPORT INFORMATION
  Report Type: 
  Country: None (occurrence: None)
  Receive Date: 20071106
  Receipt Date: 20060919
  Transmission Date: 20080405
  Serious: Yes (Other)
  Sender: FDA-Public Use
  Company Number: US-JNJFOC-20060802253

PATIENT
  Age: 62 Year
  Sex: Male
  Weight: 101.6057 kg

DRUGS (44)
  1. MOTRIN [Suspect]
     Indication: DRUG USE FOR UNKNOWN INDICATION
     Dosage: , 1 IN 1 TOTAL
     Dates: end: 20020101
  2. DISALCID (SALSALATE) [Concomitant]
  3. CLARINEX [Concomitant]
  4. NITROGLYCERIN (GLYCERYL TRINITRATE) SPRAY [Concomitant]
  5. TOPROL-XL [Concomitant]
  6. DURATUSS (RESPAIRE-SR-120) [Concomitant]
  7. LASIX [Concomitant]
  8. PLAVIX [Concomitant]
  9. ANDROGEL [Concomitant]
  10. ELIDEL (OTHER DERMATOLOGICAL PREPARATIONS) [Concomitant]
  11. MAGNESIUM TAB SR (MAGNESIUM) [Concomitant]
  12. PRILOSEC [Concomitant]
  13. PROPULSID [Concomitant]
  14. AUGMENTIN '125' [Concomitant]
  15. ACCUPRIL [Concomitant]
  16. METAMUCIL-2 [Concomitant]
  17. VIAGRA [Concomitant]
  18. CLARITIN [Concomitant]
  19. ATARAX [Concomitant]
  20. KWELL (LINDANE) SHAMPOO [Concomitant]
  21. HYOSCYAMINE (HYOSCYAMINE) [Concomitant]
  22. LIPITOR [Concomitant]
  23. AXID [Concomitant]
  24. CANTIL (MEPENZOLATE BROMIDE) [Concomitant]
  25. LOTRISONE (LOTRISONE) CREAM [Concomitant]
  26. CARTIA XT [Concomitant]
  27. TEQUIN [Concomitant]
  28. HYTRIN [Concomitant]
  29. GLUCOTROL XL [Concomitant]
  30. CARDIZEM CD [Concomitant]
  31. NIZORAL (KETOCONAZOLE) CREAM [Concomitant]
  32. AMOXIL [Concomitant]
  33. DARVOCET-N 100 [Concomitant]
  34. PRAVACHOL [Concomitant]
  35. PREVACID [Concomitant]
  36. ULTRAM [Concomitant]
  37. GLUCOPHAGE [Concomitant]
  38. ZITHROMAX [Concomitant]
  39. CEFTIN [Concomitant]
  40. MAXAIR [Concomitant]
  41. NPH HUMULIN INSULIN (INSULIN) [Concomitant]
  42. REGULAR HUMULIN INSULIN (INSULIN) [Concomitant]
  43. REDUX [Concomitant]
  44. TERAZOSIN HCL [Concomitant]

REACTIONS (1)
  - HYPERSENSITIVITY [None]
